FAERS Safety Report 19819016 (Version 1)
Quarter: 2021Q3

REPORT INFORMATION
  Report Type: Spontaneous
  Country: CN (occurrence: CN)
  Receive Date: 20210912
  Receipt Date: 20210912
  Transmission Date: 20211014
  Serious: Yes (Hospitalization)
  Sender: FDA-Public Use
  Company Number: CN-JIANGSU HENGRUI MEDICINE CO., LTD.-2118284

PATIENT
  Age: 30 Year
  Sex: Female

DRUGS (5)
  1. LETROZOLE TABLETS USP, 2.5?MG [Suspect]
     Active Substance: LETROZOLE
     Indication: INFERTILITY FEMALE
     Route: 048
     Dates: start: 20210627, end: 20210707
  2. FOLLICLE STIMULATING HORMONE, RECOMBINANT, LUTEINISING HORMONE (HUMAN) [Suspect]
     Active Substance: FOLLITROPIN\LUTROPIN ALFA
     Dates: start: 20210626, end: 20210626
  3. LUTROPIN ALFA [Suspect]
     Active Substance: LUTROPIN ALFA
     Dates: start: 20210620, end: 20210626
  4. FOLLITROPIN ALFA [Suspect]
     Active Substance: FOLLITROPIN ALFA
     Dates: start: 20210614, end: 20210623
  5. CHORIOGONADOTROPIN ALFA [Suspect]
     Active Substance: CHORIOGONADOTROPIN ALFA
     Dates: start: 20210626, end: 20210626

REACTIONS (1)
  - Ovarian hyperstimulation syndrome [Recovering/Resolving]

NARRATIVE: CASE EVENT DATE: 20210628
